FAERS Safety Report 6168570-3 (Version None)
Quarter: 2009Q2

REPORT INFORMATION
  Report Type: 
  Country: None (occurrence: None)
  Receive Date: 20090427
  Receipt Date: 20090421
  Transmission Date: 20091009
  Serious: Yes (Hospitalization)
  Sender: FDA-Public Use
  Company Number: US-BRISTOL-MYERS SQUIBB COMPANY-14511653

PATIENT
  Age: 66 Year
  Sex: Male
  Weight: 95 kg

DRUGS (11)
  1. IXEMPRA KIT [Suspect]
     Indication: PROSTATE CANCER
     Dosage: CYCLE 21DAYS; OVER 3 HOURS ON DAY 1;THERAPY INITIATED ON 13JAN2009;TOTAL DOSE:77MG.
     Route: 042
     Dates: start: 20090203, end: 20090203
  2. MITOXANTRONE [Suspect]
     Indication: PROSTATE CANCER
     Dosage: OVER 30MINUTES ON DAY 1; THERAPY INITIATED ON 13JAN2009;TOTAL DOSE:26MG.
     Route: 042
     Dates: start: 20090203, end: 20090203
  3. PREDNISONE [Suspect]
     Indication: PROSTATE CANCER
     Dosage: ON DAYS 1-21; THERAPY INITIATED ON 13JAN2009; TOTAL 5MG
     Route: 048
     Dates: start: 20090205, end: 20090205
  4. PEGFILGRASTIM [Suspect]
     Indication: PROSTATE CANCER
     Dosage: ON DAY 2; THERAPY INITIATED ON 13JAN2009;TOTAL DOSE:6MG.
     Route: 058
     Dates: start: 20090204, end: 20090204
  5. BUPROPION HCL [Concomitant]
  6. VALACYCLOVIR HCL [Concomitant]
  7. PRAVASTATIN [Concomitant]
  8. RANITIDINE [Concomitant]
  9. CALCIUM [Concomitant]
  10. SELENIUM [Concomitant]
  11. VITAMIN E [Concomitant]

REACTIONS (2)
  - CHEST PAIN [None]
  - GASTROENTERITIS [None]
